FAERS Safety Report 17637333 (Version 1)
Quarter: 2020Q2

REPORT INFORMATION
  Report Type: Spontaneous
  Country: JP (occurrence: JP)
  Receive Date: 20200407
  Receipt Date: 20200407
  Transmission Date: 20200713
  Serious: Yes (Hospitalization, Other)
  Sender: FDA-Public Use
  Company Number: JP-MYLANLABS-2020M1034488

PATIENT
  Age: 86 Year
  Sex: Male

DRUGS (2)
  1. WARFARIN [Interacting]
     Active Substance: WARFARIN
     Indication: ANTICOAGULANT THERAPY
     Dosage: 2.5 MILLIGRAM, QD
     Route: 065
  2. FLUTAMIDE TAB. 125 MG ^PFIZER^ [Suspect]
     Active Substance: FLUTAMIDE
     Indication: PROSTATE CANCER METASTATIC
     Dosage: 375 MILLIGRAM, QD
     Route: 065

REACTIONS (10)
  - Urinary bladder haemorrhage [Recovering/Resolving]
  - Haematuria [Recovering/Resolving]
  - International normalised ratio increased [Recovering/Resolving]
  - Abdominal wall haematoma [Recovering/Resolving]
  - Drug interaction [Recovering/Resolving]
  - Gingival bleeding [Recovered/Resolved]
  - Prothrombin time prolonged [Recovering/Resolving]
  - Haemorrhage subcutaneous [Recovering/Resolving]
  - Ear haemorrhage [Recovered/Resolved]
  - Haematoma muscle [Recovering/Resolving]
